FAERS Safety Report 9477900 (Version 1)
Quarter: 2013Q3

REPORT INFORMATION
  Report Type: Spontaneous
  Country: US (occurrence: None)
  Receive Date: 20130826
  Receipt Date: 20130826
  Transmission Date: 20140515
  Serious: Yes (Hospitalization)
  Sender: FDA-Public Use
  Company Number: None

PATIENT
  Age: 79 Year
  Sex: Male
  Weight: 111.6 kg

DRUGS (1)
  1. FUROSEMIDE [Suspect]
     Route: 048
     Dates: start: 20130327, end: 20130821

REACTIONS (2)
  - Syncope [None]
  - Dizziness [None]
